FAERS Safety Report 20013882 (Version 1)
Quarter: 2021Q4

REPORT INFORMATION
  Report Type: Report from Study
  Country: NL (occurrence: NL)
  Receive Date: 20211029
  Receipt Date: 20211029
  Transmission Date: 20220304
  Serious: Yes (Hospitalization, Other)
  Sender: FDA-Public Use
  Company Number: NL-BRISTOL-MYERS SQUIBB COMPANY-BMS-2021-111308

PATIENT
  Age: 44 Year
  Sex: Male
  Weight: 105 kg

DRUGS (4)
  1. NIVOLUMAB [Suspect]
     Active Substance: NIVOLUMAB
     Indication: Malignant melanoma
     Dosage: 100 MILLILITER
     Route: 065
     Dates: start: 20210430, end: 20210430
  2. PLACEBO [Suspect]
     Active Substance: UNSPECIFIED INGREDIENT
     Indication: Malignant melanoma
     Dosage: 100 MILLILITER
     Route: 065
     Dates: start: 20210430, end: 20210430
  3. NIVOLUMAB [Suspect]
     Active Substance: NIVOLUMAB
     Dosage: 100 MILLILITER
     Route: 065
     Dates: start: 20210528, end: 20210528
  4. PLACEBO [Suspect]
     Active Substance: UNSPECIFIED INGREDIENT
     Dosage: 100 MILLILITER
     Route: 065
     Dates: start: 20210528, end: 20210528

REACTIONS (1)
  - Acute kidney injury [Recovering/Resolving]

NARRATIVE: CASE EVENT DATE: 20211022
